FAERS Safety Report 4628337-1 (Version None)
Quarter: 2005Q2

REPORT INFORMATION
  Report Type: 
  Country: None (occurrence: None)
  Receive Date: 20050401
  Receipt Date: 20050329
  Transmission Date: 20051028
  Serious: Yes (Death, Hospitalization)
  Sender: FDA-Public Use
  Company Number: STA-AE-05-MTX-006

PATIENT
  Age: 83 Year
  Sex: Female
  Weight: 53.978 kg

DRUGS (20)
  1. METHOTREXATE [Suspect]
     Indication: RHEUMATOID ARTHRITIS
     Dosage: 10 MG ORAL
     Route: 048
     Dates: end: 20041026
  2. LEXAPRO [Concomitant]
  3. COUMADIN [Concomitant]
  4. FUROSEMIDE [Concomitant]
  5. TIMENTIN [Concomitant]
  6. METOPROLOL TARTRATE [Concomitant]
  7. METOCLOPRAMIDE [Concomitant]
  8. LISINOPRIL [Concomitant]
  9. LEVOFLOXACIN [Concomitant]
  10. ISOSORBIDE MONONITRATE [Concomitant]
  11. PREDNISONE [Concomitant]
  12. PANTOPRAZOLE (PANTOPRAZOLE) [Concomitant]
  13. SUCRALFATE [Concomitant]
  14. SPIRONOLACTONE [Concomitant]
  15. HYDRALAZINE HCL [Concomitant]
  16. VASOTEC [Concomitant]
  17. CLOPIDOGREL BISULFATE [Concomitant]
  18. AZITHROMYCIN [Concomitant]
  19. RANITIDINE [Concomitant]
  20. MORPHINE [Concomitant]

REACTIONS (11)
  - ACUTE MYOCARDIAL INFARCTION [None]
  - ALANINE AMINOTRANSFERASE INCREASED [None]
  - ANAEMIA [None]
  - ASPARTATE AMINOTRANSFERASE INCREASED [None]
  - BLOOD ALKALINE PHOSPHATASE INCREASED [None]
  - CARDIAC FAILURE CONGESTIVE [None]
  - HEPATIC CONGESTION [None]
  - MOUTH HAEMORRHAGE [None]
  - MULTI-ORGAN FAILURE [None]
  - PLEURAL EFFUSION [None]
  - THROMBOCYTOPENIA [None]
